FAERS Safety Report 9060281 (Version 1)
Quarter: 2013Q1

REPORT INFORMATION
  Report Type: Spontaneous
  Country: US (occurrence: None)
  Receive Date: 20130207
  Receipt Date: 20130207
  Transmission Date: 20140127
  Serious: Yes (Hospitalization, Disabling)
  Sender: FDA-Public Use
  Company Number: None

PATIENT
  Age: 57 Year
  Sex: Female

DRUGS (1)
  1. CYMBALTA [Suspect]
     Indication: PALPITATIONS
     Dosage: 60 MG 1 PER DAY PO C PEP
     Route: 048
     Dates: start: 20060725

REACTIONS (11)
  - Paraesthesia [None]
  - Musculoskeletal stiffness [None]
  - Balance disorder [None]
  - Amnesia [None]
  - Disturbance in attention [None]
  - Confusional state [None]
  - Dizziness [None]
  - Impaired driving ability [None]
  - Haematochezia [None]
  - Stomatitis [None]
  - Hyperhidrosis [None]
